FAERS Safety Report 18300413 (Version 1)
Quarter: 2020Q3

REPORT INFORMATION
  Report Type: Spontaneous
  Country: US (occurrence: US)
  Receive Date: 20200922
  Receipt Date: 20200922
  Transmission Date: 20201103
  Serious: Yes (Other)
  Sender: FDA-Public Use
  Company Number: None

PATIENT
  Age: 55 Year
  Sex: Female
  Weight: 75.6 kg

DRUGS (10)
  1. T3 [Concomitant]
     Active Substance: LIOTHYRONINE SODIUM
  2. IODINE. [Concomitant]
     Active Substance: IODINE
  3. VITAMIN C [Concomitant]
     Active Substance: ASCORBIC ACID
  4. PREGNENOLONE [Concomitant]
     Active Substance: PREGNENOLONE
  5. CELTIC SEA SALT [Concomitant]
  6. B6 [Concomitant]
     Active Substance: PYRIDOXINE HYDROCHLORIDE
  7. PROBIOTIC [Concomitant]
     Active Substance: PROBIOTICS NOS
  8. LITHIUM. [Concomitant]
     Active Substance: LITHIUM
  9. NATURE?THROID [Suspect]
     Active Substance: THYROID, PORCINE
     Indication: HYPOTHYROIDISM
     Dosage: ?          QUANTITY:2 TABLET(S);?
     Route: 048
  10. DMG [Concomitant]

REACTIONS (3)
  - Asthenia [None]
  - Weight increased [None]
  - Dizziness [None]

NARRATIVE: CASE EVENT DATE: 20200701
